FAERS Safety Report 24777094 (Version 1)
Quarter: 2024Q4

REPORT INFORMATION
  Report Type: Spontaneous
  Country: GB (occurrence: GB)
  Receive Date: 20241226
  Receipt Date: 20241226
  Transmission Date: 20250115
  Serious: Yes (Life-Threatening, Hospitalization, Disabling, Other)
  Sender: RANBAXY
  Company Number: GB-MHRA-MED-202412162058176440-SLKMF

PATIENT
  Age: 32 Year
  Sex: Male
  Weight: 73 kg

DRUGS (5)
  1. OLANZAPINE [Suspect]
     Active Substance: OLANZAPINE
     Indication: Product used for unknown indication
     Dosage: 7.5MG
     Route: 065
     Dates: start: 20230714, end: 20231031
  2. LORAZEPAM [Concomitant]
     Active Substance: LORAZEPAM
     Indication: Product used for unknown indication
     Dosage: UNK
     Route: 065
  3. ZOPICLONE [Concomitant]
     Active Substance: ZOPICLONE
     Indication: Product used for unknown indication
     Dosage: UNK
     Route: 065
  4. CANNABIDIOL AND CANNABIS SATIVA [Concomitant]
     Indication: Ankylosing spondylitis
     Dosage: UNK
     Route: 065
  5. CANNABIDIOL AND CANNABIS SATIVA [Concomitant]
     Indication: Ankylosing spondylitis
     Dosage: UNK
     Route: 065

REACTIONS (7)
  - Depression [Not Recovered/Not Resolved]
  - Urinary incontinence [Not Recovered/Not Resolved]
  - Fatigue [Not Recovered/Not Resolved]
  - Restlessness [Not Recovered/Not Resolved]
  - Confusional state [Not Recovered/Not Resolved]
  - Inflammation [Not Recovered/Not Resolved]
  - Suicidal ideation [Not Recovered/Not Resolved]

NARRATIVE: CASE EVENT DATE: 20230831
